FAERS Safety Report 9649331 (Version 3)
Quarter: 2014Q2

REPORT INFORMATION
  Report Type: Spontaneous
  Country: DK (occurrence: DK)
  Receive Date: 20131028
  Receipt Date: 20140422
  Transmission Date: 20141212
  Serious: Yes (Other)
  Sender: FDA-Public Use
  Company Number: DK-PFIZER INC-2012265996

PATIENT
  Age: 33 Year
  Sex: Male
  Weight: 90 kg

DRUGS (5)
  1. ZELDOX [Suspect]
     Indication: MENTAL DISORDER
     Dosage: 20 MG, UNK
     Route: 048
     Dates: start: 2010, end: 2013
  2. ZYPREXA [Suspect]
     Dosage: UNK
     Route: 048
     Dates: start: 2010, end: 2013
  3. RISPERDAL [Suspect]
     Dosage: UNK
     Dates: end: 2013
  4. SEROQUEL [Suspect]
     Indication: MENTAL DISORDER
     Dosage: 500 MG, UNK
     Dates: start: 20050310
  5. CIPRALEX [Concomitant]
     Dosage: UNK
     Route: 048

REACTIONS (3)
  - Gender identity disorder [Not Recovered/Not Resolved]
  - Erectile dysfunction [Unknown]
  - Semen volume decreased [Unknown]
